FAERS Safety Report 25526365 (Version 1)
Quarter: 2025Q3

REPORT INFORMATION
  Report Type: Spontaneous
  Country: IL (occurrence: IL)
  Receive Date: 20250707
  Receipt Date: 20250707
  Transmission Date: 20251020
  Serious: Yes (Other)
  Sender: NOVARTIS
  Company Number: IL-002147023-NVSC2025IL105573

PATIENT
  Age: 47 Year
  Sex: Female

DRUGS (1)
  1. GLIVEC [Suspect]
     Active Substance: IMATINIB MESYLATE
     Indication: Chronic myeloid leukaemia
     Route: 065
     Dates: start: 2011, end: 2015

REACTIONS (1)
  - Philadelphia chromosome positive [Recovered/Resolved]

NARRATIVE: CASE EVENT DATE: 20161227
